FAERS Safety Report 21453587 (Version 3)
Quarter: 2022Q4

REPORT INFORMATION
  Report Type: Spontaneous
  Country: US (occurrence: US)
  Receive Date: 20221013
  Receipt Date: 20221215
  Transmission Date: 20230113
  Serious: Yes (Other)
  Sender: FDA-Public Use
  Company Number: US-BRISTOL-MYERS SQUIBB COMPANY-2022-117335

PATIENT
  Age: 69 Year
  Sex: Female

DRUGS (2)
  1. REVLIMID [Suspect]
     Active Substance: LENALIDOMIDE
     Indication: Plasma cell myeloma
     Dosage: FOR 21 DAYS ON AND 7 DAYS OFF.
     Route: 048
     Dates: start: 20220913
  2. REVLIMID [Suspect]
     Active Substance: LENALIDOMIDE
     Dosage: FOR 21 DAYS ON AND 7 DAYS OFF.
     Route: 048
     Dates: start: 201608

REACTIONS (4)
  - Fine motor skill dysfunction [Unknown]
  - Balance disorder [Unknown]
  - Fall [Unknown]
  - Neuropathy peripheral [Unknown]

NARRATIVE: CASE EVENT DATE: 20220101
